FAERS Safety Report 14299779 (Version 2)
Quarter: 2018Q1

REPORT INFORMATION
  Report Type: Spontaneous
  Country: ES (occurrence: ES)
  Receive Date: 20171219
  Receipt Date: 20180103
  Transmission Date: 20180509
  Serious: Yes (Death)
  Sender: FDA-Public Use
  Company Number: ES-AUROBINDO-AUR-APL-2017-45624

PATIENT

DRUGS (1)
  1. VORICONAZOLE. [Suspect]
     Active Substance: VORICONAZOLE
     Dosage: ()
     Route: 065

REACTIONS (1)
  - Drug resistance [Fatal]
